FAERS Safety Report 11808138 (Version 1)
Quarter: 2015Q4

REPORT INFORMATION
  Report Type: Spontaneous
  Country: US (occurrence: US)
  Receive Date: 20151207
  Receipt Date: 20151207
  Transmission Date: 20160305
  Serious: No
  Sender: FDA-Public Use
  Company Number: US-ENDO PHARMACEUTICALS INC.-201503172

PATIENT
  Sex: Male
  Weight: 63.56 kg

DRUGS (2)
  1. TESTIM [Suspect]
     Active Substance: TESTOSTERONE
     Route: 062
     Dates: start: 2010, end: 2014
  2. CIALIS [Concomitant]
     Active Substance: TADALAFIL
     Dates: start: 2014

REACTIONS (1)
  - Somnolence [Recovered/Resolved]
